FAERS Safety Report 19623038 (Version 1)
Quarter: 2021Q3

REPORT INFORMATION
  Report Type: Spontaneous
  Country: CN (occurrence: CN)
  Receive Date: 20210728
  Receipt Date: 20210728
  Transmission Date: 20211014
  Serious: Yes (Hospitalization, Other)
  Sender: FDA-Public Use
  Company Number: CN-BAYER-2021-181481

PATIENT
  Age: 53 Year
  Sex: Male
  Weight: 63 kg

DRUGS (10)
  1. STIVARGA [Suspect]
     Active Substance: REGORAFENIB
     Indication: COLON CANCER RECURRENT
     Dosage: UNK
     Route: 048
     Dates: start: 20210720
  2. OPDIVO [Suspect]
     Active Substance: NIVOLUMAB
     Indication: COLON CANCER RECURRENT
     Dosage: 80 MG, QD
     Route: 041
     Dates: start: 20210602, end: 20210602
  3. SODIUM CHLORIDE. [Concomitant]
     Active Substance: SODIUM CHLORIDE
     Indication: VEHICLE SOLUTION USE
     Dosage: 100 ML, QD
     Route: 041
     Dates: start: 20210602, end: 20210602
  4. OPDIVO [Suspect]
     Active Substance: NIVOLUMAB
     Indication: COLON CANCER RECURRENT
     Dosage: 100 MG, QD
     Route: 041
     Dates: start: 20210616, end: 20210616
  5. OPDIVO [Suspect]
     Active Substance: NIVOLUMAB
     Indication: COLON CANCER RECURRENT
     Dosage: UNK
     Route: 041
     Dates: start: 20210720
  6. OPDIVO [Suspect]
     Active Substance: NIVOLUMAB
     Indication: COLON CANCER RECURRENT
     Dosage: 80 MG, QD
     Route: 041
     Dates: start: 20210616, end: 20210616
  7. SODIUM CHLORIDE. [Concomitant]
     Active Substance: SODIUM CHLORIDE
     Indication: VEHICLE SOLUTION USE
     Dosage: 100 ML, QD
     Route: 041
     Dates: start: 20210616, end: 20210616
  8. STIVARGA [Suspect]
     Active Substance: REGORAFENIB
     Indication: COLON CANCER RECURRENT
     Dosage: 120 MG, QD
     Route: 048
     Dates: start: 20210609, end: 20210623
  9. STIVARGA [Suspect]
     Active Substance: REGORAFENIB
     Indication: COLON CANCER RECURRENT
     Dosage: 80 MG, QD
     Route: 048
     Dates: start: 20210602, end: 20210608
  10. OPDIVO [Suspect]
     Active Substance: NIVOLUMAB
     Indication: COLON CANCER RECURRENT
     Dosage: 100 MG, QD
     Route: 041
     Dates: start: 20210602, end: 20210602

REACTIONS (3)
  - Autoimmune hepatitis [Recovering/Resolving]
  - Off label use [None]
  - Hepatic enzyme increased [Recovering/Resolving]

NARRATIVE: CASE EVENT DATE: 20210602
